FAERS Safety Report 9799553 (Version 1)
Quarter: 2014Q1

REPORT INFORMATION
  Report Type: Spontaneous
  Country: US (occurrence: None)
  Receive Date: 20140103
  Receipt Date: 20140103
  Transmission Date: 20141002
  Serious: No
  Sender: FDA-Public Use
  Company Number: None

PATIENT
  Age: 25 Year
  Sex: Male

DRUGS (1)
  1. HUMIRA 40MG ABBVIE [Suspect]
     Route: 058
     Dates: start: 20130701

REACTIONS (2)
  - Injection site rash [None]
  - Drug hypersensitivity [None]
